FAERS Safety Report 10960675 (Version 2)
Quarter: 2015Q2

REPORT INFORMATION
  Report Type: Spontaneous
  Country: JP (occurrence: JP)
  Receive Date: 20150327
  Receipt Date: 20150501
  Transmission Date: 20150821
  Serious: No
  Sender: FDA-Public Use
  Company Number: JP-PFIZER INC-2015104464

PATIENT
  Age: 44 Year
  Sex: Female
  Weight: 44 kg

DRUGS (2)
  1. DORMICUM FOR INJECTION [Suspect]
     Active Substance: MIDAZOLAM\MIDAZOLAM HYDROCHLORIDE
     Indication: GENERAL ANAESTHESIA
     Dosage: 2 MG, 1X/DAY
     Route: 042
     Dates: start: 20140808, end: 20140808
  2. SOLANAX [Suspect]
     Active Substance: ALPRAZOLAM
     Indication: INITIAL INSOMNIA
     Dosage: 0.8 MG, 1X/DAY
     Route: 048
     Dates: start: 20140807, end: 20140807

REACTIONS (1)
  - Delayed recovery from anaesthesia [Recovered/Resolved]

NARRATIVE: CASE EVENT DATE: 20140808
